FAERS Safety Report 6594803-5 (Version None)
Quarter: 2010Q1

REPORT INFORMATION
  Report Type: 
  Country: None (occurrence: None)
  Receive Date: 20100222
  Receipt Date: 20100210
  Transmission Date: 20100710
  Serious: Yes (Other)
  Sender: FDA-Public Use
  Company Number: JP-PFIZER INC-2010021341

PATIENT
  Sex: Male

DRUGS (2)
  1. SOLANAX [Suspect]
     Route: 048
  2. LORAZEPAM [Concomitant]
     Route: 048

REACTIONS (3)
  - DRUG EFFECT DECREASED [None]
  - VISION BLURRED [None]
  - VISUAL IMPAIRMENT [None]
